FAERS Safety Report 21620475 (Version 3)
Quarter: 2023Q2

REPORT INFORMATION
  Report Type: Report from Study
  Country: DE (occurrence: DE)
  Receive Date: 20221121
  Receipt Date: 20230502
  Transmission Date: 20230722
  Serious: Yes (Hospitalization, Other)
  Sender: FDA-Public Use
  Company Number: DE-002147023-NVSC2022DE051379

PATIENT
  Sex: Female

DRUGS (2)
  1. ERELZI [Suspect]
     Active Substance: ETANERCEPT-SZZS
     Indication: Product used for unknown indication
     Dosage: 50 MG
     Route: 065
     Dates: start: 202009, end: 202111
  2. ERELZI [Suspect]
     Active Substance: ETANERCEPT-SZZS
     Dosage: 50 MG
     Route: 065
     Dates: start: 202202

REACTIONS (10)
  - Gastrointestinal submucosal tumour [Unknown]
  - Gastrointestinal angiodysplasia [Recovered/Resolved]
  - Large intestinal ulcer [Recovered/Resolved]
  - Pancreatic cystadenoma [Unknown]
  - Colorectal adenoma [Recovered/Resolved]
  - Large intestinal haemorrhage [Unknown]
  - Iron deficiency anaemia [Unknown]
  - Fibromyalgia [Not Recovered/Not Resolved]
  - Cardiomegaly [Unknown]
  - Renal cyst [Unknown]

NARRATIVE: CASE EVENT DATE: 20200101
